FAERS Safety Report 22347686 (Version 5)
Quarter: 2023Q4

REPORT INFORMATION
  Report Type: Report from Study
  Country: MX (occurrence: MX)
  Receive Date: 20230522
  Receipt Date: 20231122
  Transmission Date: 20240110
  Serious: Yes (Other)
  Sender: FDA-Public Use
  Company Number: MX-002147023-NVSC2023MX112048

PATIENT
  Sex: Female
  Weight: 54 kg

DRUGS (4)
  1. GILENYA [Suspect]
     Active Substance: FINGOLIMOD HYDROCHLORIDE
     Indication: Multiple sclerosis
     Dosage: 0.5 MG, QD (1 OF 0.5 MG) (BY MOUTH)
     Route: 048
     Dates: start: 20220913
  2. SERTRALINE [Concomitant]
     Active Substance: SERTRALINE HYDROCHLORIDE
     Indication: Depression
     Dosage: 0.5 DOSAGE FORM, QD (?) (STARTED SEVERAL YEARS AGO, DOES NOT KNOW THE EXACT DATE)
     Route: 048
  3. TOPIRAMATE [Concomitant]
     Active Substance: TOPIRAMATE
     Indication: Seizure
     Dosage: 0.25 DOSAGE FORM, QD (?)
     Route: 048
     Dates: start: 2008
  4. CLONAZEPAM [Concomitant]
     Active Substance: CLONAZEPAM
     Indication: Insomnia
     Dosage: 0.25 DOSAGE FORM, QD (?)
     Route: 048
     Dates: start: 2008

REACTIONS (21)
  - Cataract [Not Recovered/Not Resolved]
  - Visual impairment [Unknown]
  - Hypovitaminosis [Unknown]
  - Laziness [Not Recovered/Not Resolved]
  - Dysphonia [Not Recovered/Not Resolved]
  - Eye pain [Not Recovered/Not Resolved]
  - Asthenopia [Not Recovered/Not Resolved]
  - Eye disorder [Not Recovered/Not Resolved]
  - Ocular discomfort [Not Recovered/Not Resolved]
  - Dry skin [Recovering/Resolving]
  - Vulvovaginal pruritus [Recovering/Resolving]
  - Gardnerella infection [Not Recovered/Not Resolved]
  - Vaginal discharge [Recovered/Resolved]
  - Vaginal odour [Not Recovered/Not Resolved]
  - Vision blurred [Not Recovered/Not Resolved]
  - Fatigue [Not Recovered/Not Resolved]
  - Confusional state [Not Recovered/Not Resolved]
  - Asthenia [Not Recovered/Not Resolved]
  - Somnolence [Not Recovered/Not Resolved]
  - Fungal infection [Not Recovered/Not Resolved]
  - Fungal foot infection [Not Recovered/Not Resolved]
